FAERS Safety Report 9779953 (Version 1)
Quarter: 2013Q4

REPORT INFORMATION
  Report Type: Spontaneous
  Country: AU (occurrence: AU)
  Receive Date: 20131223
  Receipt Date: 20131223
  Transmission Date: 20140711
  Serious: Yes (Other)
  Sender: FDA-Public Use
  Company Number: AU-009507513-1312AUS008835

PATIENT
  Age: 45 Year
  Sex: Female
  Weight: 76 kg

DRUGS (5)
  1. LORATADINE [Suspect]
     Dosage: 10 MG, DF
     Route: 048
     Dates: start: 20131108
  2. DEXAMETHASONE [Suspect]
     Dosage: 20 MG, DF
     Route: 042
     Dates: start: 20131108
  3. RANITIDINE [Suspect]
     Dosage: 50 MG, DF
     Route: 042
     Dates: start: 20131108
  4. KYTRIL [Concomitant]
  5. PACLITAXEL [Concomitant]

REACTIONS (1)
  - Hypersensitivity [Recovered/Resolved]
